FAERS Safety Report 5004470-X (Version None)
Quarter: 2006Q2

REPORT INFORMATION
  Report Type: 
  Country: None (occurrence: None)
  Receive Date: 20060516
  Receipt Date: 20060516
  Transmission Date: 20061013
  Serious: Yes (Hospitalization)
  Sender: FDA-Public Use
  Company Number: None

PATIENT
  Sex: Female

DRUGS (2)
  1. MIRCETTE [Suspect]
     Indication: ORAL CONTRACEPTION
     Dosage: 1 TAB DAILY PO
     Route: 048
  2. ASTHMA TX [Concomitant]

REACTIONS (1)
  - PULMONARY EMBOLISM [None]
